FAERS Safety Report 5221735-7 (Version None)
Quarter: 2007Q1

REPORT INFORMATION
  Report Type: 
  Country: None (occurrence: None)
  Receive Date: 20070123
  Receipt Date: 20070117
  Transmission Date: 20070707
  Serious: Yes (Life-Threatening, Hospitalization)
  Sender: FDA-Public Use
  Company Number: 2006-152230-NL

PATIENT
  Age: 28 Year
  Sex: Female

DRUGS (4)
  1. CHORIONIC GONADOTROPIN [Suspect]
     Indication: INFERTILITY
     Dosage: 5000 IU OM INTRAMUSCULAR
     Route: 030
     Dates: start: 20060810, end: 20061110
  2. QUINAGOLIDE HYDROCHLORIDE [Concomitant]
  3. PREDNISOLONE SODIUM SULFOBENZOATE [Concomitant]
  4. CLARITHROMYCIN [Concomitant]

REACTIONS (1)
  - PERITONEAL HAEMORRHAGE [None]
